FAERS Safety Report 19261367 (Version 1)
Quarter: 2021Q2

REPORT INFORMATION
  Report Type: Spontaneous
  Country: US (occurrence: US)
  Receive Date: 20210515
  Receipt Date: 20210515
  Transmission Date: 20210717
  Serious: No
  Sender: FDA-Public Use
  Company Number: NVSC2021US104540

PATIENT
  Sex: Female
  Weight: 52.16 kg

DRUGS (1)
  1. METFORMIN [Suspect]
     Active Substance: METFORMIN HYDROCHLORIDE
     Indication: TYPE 2 DIABETES MELLITUS
     Dosage: 500 MG, BID
     Route: 048

REACTIONS (11)
  - Dizziness [Unknown]
  - Discomfort [Unknown]
  - Paraesthesia [Unknown]
  - Chills [Unknown]
  - Hypersensitivity [Unknown]
  - Hypoaesthesia [Unknown]
  - Burning sensation [Unknown]
  - Nausea [Unknown]
  - Headache [Unknown]
  - Swelling [Unknown]
  - Daydreaming [Unknown]
